FAERS Safety Report 9075126 (Version 1)
Quarter: 2013Q1

REPORT INFORMATION
  Report Type: Spontaneous
  Country: US (occurrence: US)
  Receive Date: 20130129
  Receipt Date: 20130129
  Transmission Date: 20140127
  Serious: No
  Sender: FDA-Public Use
  Company Number: US-ASTRAZENECA-2013SE03583

PATIENT
  Age: 61 Year
  Sex: Male

DRUGS (5)
  1. BRILINTA [Suspect]
     Indication: ACUTE CORONARY SYNDROME
     Dosage: AT NOON
     Route: 048
     Dates: start: 20130114, end: 20130114
  2. BRILINTA [Suspect]
     Indication: ACUTE CORONARY SYNDROME
     Dosage: AT 8PM
     Route: 048
     Dates: start: 20130114, end: 20130114
  3. BRILINTA [Suspect]
     Indication: ACUTE CORONARY SYNDROME
     Route: 048
  4. ASPIRIN [Suspect]
     Indication: ACUTE CORONARY SYNDROME
     Dosage: AT NOON
     Route: 048
     Dates: start: 20130114, end: 20130114
  5. ASPIRIN [Suspect]
     Indication: ACUTE CORONARY SYNDROME
     Route: 048

REACTIONS (1)
  - Platelet aggregation inhibition [Unknown]
